FAERS Safety Report 8274377-3 (Version None)
Quarter: 2012Q2

REPORT INFORMATION
  Report Type: 
  Country: None (occurrence: None)
  Receive Date: 20120409
  Receipt Date: 20120325
  Transmission Date: 20120825
  Serious: Yes (Other)
  Sender: FDA-Public Use
  Company Number: JP-2012-14698

PATIENT
  Age: 87 Year
  Sex: Male
  Weight: 76 kg

DRUGS (15)
  1. DIART (AZOSEMIDE) TABLET [Suspect]
     Indication: CARDIAC FAILURE
     Dosage: 60 MG MILLIGRAM(S), DAILY DOSE, ORAL
     Route: 048
  2. DEXTROSE 5% [Concomitant]
  3. SAMSCA [Suspect]
     Indication: FLUID RETENTION
     Dosage: 15 MG MILLIGRAM(S), QAM, ORAL
     Route: 048
     Dates: start: 20120210, end: 20120224
  4. PROMAC (POLAPREZINC) [Concomitant]
  5. KREMEZIN (CHARCOAL, ACTIVATED) [Concomitant]
  6. YODEL S (SENNA EXTRACT) [Concomitant]
  7. LANSOPRAZOLE [Concomitant]
  8. MAGMITT (MAGNESIUM OXIDE) [Concomitant]
  9. HANP (CARPERITIDE) [Concomitant]
  10. ALLOPURINOL [Concomitant]
  11. WARFARIN SODIUM [Concomitant]
  12. LASIX [Suspect]
     Indication: CARDIAC FAILURE
     Dosage: 40 MG MILLIGRAM(S), DAILY DOSE, ORAL
     Route: 048
  13. ATELEC (CILNIDIPINE) [Concomitant]
  14. COUGHNOL (AMBROXOL HYDROCHLORIDE) [Concomitant]
  15. CALBLOCK (AZELNIDIPINE) [Concomitant]

REACTIONS (2)
  - BLOOD UREA INCREASED [None]
  - THIRST [None]
